FAERS Safety Report 4861886-X (Version None)
Quarter: 2005Q4

REPORT INFORMATION
  Report Type: 
  Country: None (occurrence: None)
  Receive Date: 20051129
  Receipt Date: 20050802
  Transmission Date: 20060501
  Serious: No
  Sender: FDA-Public Use
  Company Number: WAES 0508USA00447

PATIENT
  Age: 83 Year
  Sex: Male
  Weight: 74.3899 kg

DRUGS (10)
  1. ZETIA [Suspect]
     Indication: HYPERLIPIDAEMIA
     Dosage: 10 MG DAILY PO
     Route: 048
     Dates: start: 20040713, end: 20050420
  2. COREG [Concomitant]
  3. LASIX [Concomitant]
  4. PLAVIX [Concomitant]
  5. SYNTHROID [Concomitant]
  6. VIAGRA [Concomitant]
  7. ASPIRIN [Concomitant]
  8. IRBESARTAN [Concomitant]
  9. QUININE SULFATE [Concomitant]
  10. VITAMINS (UNSPECIFIED) [Concomitant]

REACTIONS (3)
  - APHASIA [None]
  - DIZZINESS [None]
  - THROMBOCYTOPENIA [None]
